FAERS Safety Report 9168648 (Version 1)
Quarter: 2013Q1

REPORT INFORMATION
  Report Type: Spontaneous
  Country: FR (occurrence: FR)
  Receive Date: 20130318
  Receipt Date: 20130318
  Transmission Date: 20140127
  Serious: Yes (Other)
  Sender: FDA-Public Use
  Company Number: FR-JNJFOC-20130305072

PATIENT
  Age: 62 Year
  Sex: Male

DRUGS (1)
  1. REMICADE [Suspect]
     Indication: COLITIS ULCERATIVE
     Dosage: DRUG STARTED 3 OR 4 YEARS AGO FROM THE DATE OF THE REPORT
     Route: 042
     Dates: end: 201201

REACTIONS (1)
  - Acute myeloid leukaemia [Unknown]
